FAERS Safety Report 9324894 (Version 1)
Quarter: 2013Q2

REPORT INFORMATION
  Report Type: Spontaneous
  Country: GB (occurrence: GB)
  Receive Date: 20130603
  Receipt Date: 20130603
  Transmission Date: 20140414
  Serious: Yes (Other)
  Sender: FDA-Public Use
  Company Number: CHNY2008GB01978

PATIENT
  Age: 2 Year
  Sex: Male

DRUGS (5)
  1. IBUPROFEN [Suspect]
     Indication: JUVENILE IDIOPATHIC ARTHRITIS
     Dosage: 200 MG, BID
     Route: 048
     Dates: start: 200401
  2. PIROXICAM [Suspect]
     Indication: JUVENILE IDIOPATHIC ARTHRITIS
     Dosage: UNK
     Route: 048
     Dates: start: 200401
  3. METHOTREXATE [Suspect]
     Indication: JUVENILE IDIOPATHIC ARTHRITIS
     Dosage: 7.5 MG, QW
     Route: 058
     Dates: start: 20030801, end: 20040129
  4. IRON [Concomitant]
     Dosage: 5 ML, TID
     Dates: start: 200408
  5. TRIAMCINOLONE [Concomitant]
     Dates: start: 200402

REACTIONS (5)
  - Spondylitis [Unknown]
  - Musculoskeletal stiffness [Unknown]
  - Pain [Unknown]
  - Posture abnormal [Unknown]
  - Alanine aminotransferase increased [Unknown]
